FAERS Safety Report 7958297-7 (Version None)
Quarter: 2011Q4

REPORT INFORMATION
  Report Type: 
  Country: None (occurrence: None)
  Receive Date: 20111205
  Receipt Date: 20111123
  Transmission Date: 20120403
  Serious: Yes (Hospitalization, Other)
  Sender: FDA-Public Use
  Company Number: CH-COVIDIEN/TYCO HEALTHCARE/MALLINCKRODT-T201102787

PATIENT
  Age: 37 Year
  Sex: Male

DRUGS (1)
  1. METHYLIN [Suspect]
     Indication: PRODUCT USED FOR UNKNOWN INDICATION
     Dosage: UNK
     Route: 013

REACTIONS (7)
  - INCORRECT ROUTE OF DRUG ADMINISTRATION [None]
  - PAIN [None]
  - TOXICITY TO VARIOUS AGENTS [None]
  - DRUG ABUSE [None]
  - FINGER AMPUTATION [None]
  - EXTREMITY NECROSIS [None]
  - PERIPHERAL ISCHAEMIA [None]
